FAERS Safety Report 10861105 (Version 1)
Quarter: 2015Q1

REPORT INFORMATION
  Report Type: Spontaneous
  Country: US (occurrence: None)
  Receive Date: 20150218
  Receipt Date: 20150218
  Transmission Date: 20150721
  Serious: Yes (Hospitalization)
  Sender: FDA-Public Use
  Company Number: None

PATIENT
  Age: 74 Year
  Sex: Female
  Weight: 65.8 kg

DRUGS (5)
  1. WARFARIN [Concomitant]
     Active Substance: WARFARIN
  2. ASCORBIC ACID. [Concomitant]
     Active Substance: ASCORBIC ACID
  3. THICK-IT POWDER WITH ALL LIQUIDS [Concomitant]
  4. CIPRO [Suspect]
     Active Substance: CIPROFLOXACIN HYDROCHLORIDE
     Indication: URINARY TRACT INFECTION
     Route: 048
  5. COLACE [Concomitant]
     Active Substance: DOCUSATE SODIUM

REACTIONS (4)
  - Stevens-Johnson syndrome [None]
  - Urticaria [None]
  - Lip swelling [None]
  - Hypersensitivity [None]

NARRATIVE: CASE EVENT DATE: 20150212
